FAERS Safety Report 5118534-3 (Version None)
Quarter: 2006Q3

REPORT INFORMATION
  Report Type: 
  Country: None (occurrence: None)
  Receive Date: 20060927
  Receipt Date: 20060917
  Transmission Date: 20061208
  Serious: Yes (Other)
  Sender: FDA-Public Use
  Company Number: 2006BI010705

PATIENT
  Age: 52 Year
  Sex: Male

DRUGS (5)
  1. AVONEX [Suspect]
     Indication: RELAPSING-REMITTING MULTIPLE SCLEROSIS
     Dosage: 30 UG QW IM
     Route: 030
     Dates: start: 19990101
  2. NEURONTIN [Concomitant]
  3. AMITRIPTYLINE HCL [Concomitant]
  4. BACLOFEN [Concomitant]
  5. AMANTADINE HCL [Concomitant]

REACTIONS (2)
  - EPILEPSY [None]
  - HEADACHE [None]
